FAERS Safety Report 8128273-2 (Version None)
Quarter: 2012Q1

REPORT INFORMATION
  Report Type: 
  Country: None (occurrence: None)
  Receive Date: 20120210
  Receipt Date: 20120207
  Transmission Date: 20120608
  Serious: Yes (Other)
  Sender: FDA-Public Use
  Company Number: US-PFIZER INC-K201100689

PATIENT
  Sex: Female
  Weight: 104.31 kg

DRUGS (5)
  1. XANAX [Suspect]
     Indication: IRRITABLE BOWEL SYNDROME
     Dosage: 0.5 MG, PRN 3-4 TIMES DAILY
     Route: 048
     Dates: start: 19930101
  2. HYOMAX [Suspect]
     Indication: NAUSEA
     Dosage: 0.375 MG, PRN 2-3 TIMES DAILY
     Route: 048
     Dates: end: 19930101
  3. TIGAN [Suspect]
     Indication: NAUSEA
     Dosage: 300 MG, PRN 3-4 TIMES DAILY
     Route: 048
  4. LEVBID [Suspect]
     Dosage: UNK
     Dates: end: 19930101
  5. ELAVIL [Suspect]
     Indication: IRRITABLE BOWEL SYNDROME
     Dosage: 25 MG, 1X/DAY
     Route: 048
     Dates: start: 19930101, end: 19930101

REACTIONS (10)
  - DISTURBANCE IN ATTENTION [None]
  - PAIN IN EXTREMITY [None]
  - READING DISORDER [None]
  - FEELING ABNORMAL [None]
  - BREAST CANCER [None]
  - FIBROMYALGIA [None]
  - BLOOD PRESSURE INCREASED [None]
  - HYPERVENTILATION [None]
  - FATIGUE [None]
  - PAIN [None]
